FAERS Safety Report 9857111 (Version 1)
Quarter: 2014Q1

REPORT INFORMATION
  Report Type: Spontaneous
  Country: IT (occurrence: IT)
  Receive Date: 20140130
  Receipt Date: 20140130
  Transmission Date: 20141002
  Serious: Yes (Other)
  Sender: FDA-Public Use
  Company Number: IT-VERTEX PHARMACEUTICALS INC-2014-000478

PATIENT
  Age: 59 Year
  Sex: Male

DRUGS (3)
  1. INCIVO [Suspect]
     Indication: CHRONIC HEPATITIS C
     Dosage: 750 MG, QD
     Route: 048
     Dates: start: 20140104, end: 20140116
  2. COPEGUS [Suspect]
     Indication: CHRONIC HEPATITIS C
     Dosage: DOSAGE FORM: TABLET
     Route: 048
     Dates: start: 20140104, end: 20140116
  3. PEGINTRON [Concomitant]
     Indication: CHRONIC HEPATITIS C
     Dosage: DOSAGE FORM: POWDER FOR INJECTION
     Route: 058
     Dates: start: 20140104, end: 20140116

REACTIONS (2)
  - Drug interaction [Unknown]
  - Anaemia [Unknown]
